FAERS Safety Report 7211169-8 (Version None)
Quarter: 2011Q1

REPORT INFORMATION
  Report Type: 
  Country: None (occurrence: None)
  Receive Date: 20110105
  Receipt Date: 20101221
  Transmission Date: 20110831
  Serious: Yes (Hospitalization)
  Sender: FDA-Public Use
  Company Number: JP-AMGEN-JPNCT2011000265

PATIENT

DRUGS (9)
  1. CORTICOSTEROIDS [Concomitant]
     Indication: PROPHYLAXIS
     Dosage: UNK
     Route: 065
  2. LENDORMIN D [Concomitant]
     Route: 048
  3. CELECOX [Concomitant]
     Route: 048
  4. MAGLAX [Concomitant]
     Route: 048
  5. PANITUMUMAB [Suspect]
     Indication: COLORECTAL CANCER
     Dosage: 6 MG/KG, Q2WK
     Route: 041
     Dates: start: 20100819
  6. MOHRUS TAPE [Concomitant]
     Dosage: UNK
     Route: 062
  7. HIRUDOID [Concomitant]
     Dosage: UNK
     Route: 062
  8. TAKEPRON OD TABLETS 15 [Concomitant]
     Route: 048
  9. GOSHAJINKIGAN [Concomitant]
     Route: 048

REACTIONS (2)
  - DERMATITIS ACNEIFORM [None]
  - HUMERUS FRACTURE [None]
